FAERS Safety Report 5699316-0 (Version None)
Quarter: 2008Q2

REPORT INFORMATION
  Report Type: 
  Country: None (occurrence: None)
  Receive Date: 20080404
  Receipt Date: 20080324
  Transmission Date: 20081010
  Serious: No
  Sender: FDA-Public Use
  Company Number: US023084

PATIENT
  Sex: Male

DRUGS (4)
  1. FENTORA [Suspect]
     Indication: PAIN
     Dosage: 400 UG BUCCAL
     Route: 002
  2. FENTORA [Suspect]
     Indication: PAIN
     Dosage: 600 UG BUCCAL
     Route: 002
  3. ACTIQ [Concomitant]
  4. OXYCODONE HCL [Concomitant]

REACTIONS (2)
  - DRUG INEFFECTIVE [None]
  - MEDICATION ERROR [None]
